FAERS Safety Report 8839474 (Version 1)
Quarter: 2012Q4

REPORT INFORMATION
  Report Type: Spontaneous
  Country: US (occurrence: None)
  Receive Date: 20121012
  Receipt Date: 20121012
  Transmission Date: 20130627
  Serious: Yes (Other)
  Sender: FDA-Public Use
  Company Number: None

PATIENT
  Sex: Female
  Weight: 77.11 kg

DRUGS (1)
  1. SALONPAS PAIN RELIEVING PATCH HOT [Suspect]
     Route: 062
     Dates: start: 20121010, end: 20121010

REACTIONS (2)
  - Application site erythema [None]
  - Application site pain [None]
